FAERS Safety Report 6991912-3 (Version None)
Quarter: 2010Q3

REPORT INFORMATION
  Report Type: 
  Country: None (occurrence: None)
  Receive Date: 20100915
  Receipt Date: 20100915
  Transmission Date: 20110219
  Serious: Yes (Other)
  Sender: FDA-Public Use
  Company Number: None

PATIENT
  Age: 51 Year
  Sex: Female
  Weight: 92.9874 kg

DRUGS (1)
  1. ROPINOROLE 0.5 MG [Suspect]
     Indication: RESTLESS LEGS SYNDROME
     Dosage: 0.5 MG DAILY PO
     Route: 048
     Dates: start: 20100201, end: 20100910

REACTIONS (1)
  - MALIGNANT MELANOMA [None]
